FAERS Safety Report 12547205 (Version 1)
Quarter: 2016Q3

REPORT INFORMATION
  Report Type: Spontaneous
  Country: US (occurrence: US)
  Receive Date: 20160711
  Receipt Date: 20160711
  Transmission Date: 20161109
  Serious: Yes (Other)
  Sender: FDA-Public Use
  Company Number: US-ACTELION-A-US2016-139085

PATIENT
  Age: 47 Year
  Sex: Female

DRUGS (56)
  1. AMBRISENTAN [Suspect]
     Active Substance: AMBRISENTAN
     Dosage: 10 MG, QD
     Route: 048
  2. TREPROSTINIL DIOLAMIN [Suspect]
     Active Substance: TREPROSTINIL DIOLAMINE
     Dosage: 5 MG, TID
     Route: 048
     Dates: end: 20160309
  3. PRILOSEC [Concomitant]
     Active Substance: OMEPRAZOLE MAGNESIUM
  4. VITAMIN B COMPLEX [Concomitant]
     Active Substance: CYANOCOBALAMIN\DEXPANTHENOL\NIACINAMIDE\PYRIDOXINE HYDROCHLORIDE\RIBOFLAVIN 5^-PHOSPHATE SODIUM\THIAMINE HYDROCHLORIDE\VITAMIN B COMPLEX
  5. ONDANSETRON [Concomitant]
     Active Substance: ONDANSETRON
  6. UPTRAVI [Suspect]
     Active Substance: SELEXIPAG
     Indication: PULMONARY ARTERIAL HYPERTENSION
     Dosage: 200 MG, UNK
     Route: 048
     Dates: start: 20160224
  7. REMODULIN [Suspect]
     Active Substance: TREPROSTINIL
     Indication: PULMONARY ARTERIAL HYPERTENSION
     Dosage: 0.092 MCG/KG, UNK
     Route: 042
     Dates: start: 201406, end: 201602
  8. TREPROSTINIL DIOLAMIN [Suspect]
     Active Substance: TREPROSTINIL DIOLAMINE
     Dosage: 2.5 MG, UNK
     Route: 048
     Dates: end: 20160309
  9. TORSEMIDE. [Concomitant]
     Active Substance: TORSEMIDE
  10. SYNTHROID [Concomitant]
     Active Substance: LEVOTHYROXINE SODIUM
  11. ASCORBIC ACID. [Concomitant]
     Active Substance: ASCORBIC ACID
  12. CELEBREX [Concomitant]
     Active Substance: CELECOXIB
  13. ACIPHEX [Concomitant]
     Active Substance: RABEPRAZOLE SODIUM
  14. REMODULIN [Suspect]
     Active Substance: TREPROSTINIL
     Dosage: UNK
     Route: 048
     Dates: start: 20150806
  15. TREPROSTINIL DIOLAMIN [Suspect]
     Active Substance: TREPROSTINIL DIOLAMINE
     Indication: PULMONARY HYPERTENSION
     Dosage: 2.5 MG, UNK
     Route: 048
     Dates: start: 20151229, end: 20160309
  16. TREPROSTINIL DIOLAMIN [Suspect]
     Active Substance: TREPROSTINIL DIOLAMINE
     Dosage: 7.5 MG, UNK
     Route: 048
     Dates: end: 20160309
  17. REQUIP [Concomitant]
     Active Substance: ROPINIROLE HYDROCHLORIDE
  18. DIPHENHYDRAMINE. [Concomitant]
     Active Substance: DIPHENHYDRAMINE
  19. FLUTICASONE [Concomitant]
     Active Substance: FLUTICASONE\FLUTICASONE PROPIONATE
  20. TRAMADOL. [Concomitant]
     Active Substance: TRAMADOL
  21. IRON [Concomitant]
     Active Substance: IRON
  22. REVATIO [Suspect]
     Active Substance: SILDENAFIL CITRATE
     Indication: PRODUCT USED FOR UNKNOWN INDICATION
     Dosage: 60 MG, TID
     Route: 048
     Dates: start: 201501
  23. TREPROSTINIL DIOLAMIN [Suspect]
     Active Substance: TREPROSTINIL DIOLAMINE
     Dosage: 10 MG, UNK
     Route: 048
     Dates: end: 20160309
  24. TREPROSTINIL DIOLAMIN [Suspect]
     Active Substance: TREPROSTINIL DIOLAMINE
     Dosage: 5 MG, UNK
     Route: 048
     Dates: end: 20160309
  25. SINEMET [Concomitant]
     Active Substance: CARBIDOPA\LEVODOPA
  26. DIGOXIN. [Concomitant]
     Active Substance: DIGOXIN
  27. FERROUS GLUCONATE [Concomitant]
     Active Substance: FERROUS GLUCONATE
  28. REMODULIN [Suspect]
     Active Substance: TREPROSTINIL
     Dosage: UNK
     Route: 042
     Dates: end: 201602
  29. TREPROSTINIL DIOLAMIN [Suspect]
     Active Substance: TREPROSTINIL DIOLAMINE
     Dosage: 7.5 MG, UNK
     Route: 048
     Dates: end: 20160309
  30. TREPROSTINIL DIOLAMIN [Suspect]
     Active Substance: TREPROSTINIL DIOLAMINE
     Dosage: 17.5 MG, UNK
     Route: 048
     Dates: end: 20160309
  31. ELAVIL [Concomitant]
     Active Substance: AMITRIPTYLINE HYDROCHLORIDE
  32. COLACE [Concomitant]
     Active Substance: DOCUSATE SODIUM
  33. DEMADEX [Concomitant]
     Active Substance: TORSEMIDE
  34. BIOTIN [Concomitant]
     Active Substance: BIOTIN
  35. MELOXICAM. [Concomitant]
     Active Substance: MELOXICAM
  36. PROMETHAZINE [Concomitant]
     Active Substance: PROMETHAZINE\PROMETHAZINE HYDROCHLORIDE
  37. ALPRAZOLAM. [Concomitant]
     Active Substance: ALPRAZOLAM
  38. XARELTO [Concomitant]
     Active Substance: RIVAROXABAN
  39. AMBRISENTAN [Suspect]
     Active Substance: AMBRISENTAN
     Indication: DRUG ABUSE
     Dosage: 10 MG, QD
     Route: 048
  40. ATIVAN [Concomitant]
     Active Substance: LORAZEPAM
  41. VITAMIN C [Concomitant]
     Active Substance: ASCORBIC ACID
  42. KLOR-CON [Concomitant]
     Active Substance: POTASSIUM CHLORIDE
  43. METOLAZONE. [Concomitant]
     Active Substance: METOLAZONE
  44. CALCIUM [Concomitant]
     Active Substance: CALCIUM
  45. MORPHINE HYDROCHLORIDE [Concomitant]
     Active Substance: MORPHINE HYDROCHLORIDE
  46. ACETYLSALICYLIC ACID [Suspect]
     Active Substance: ASPIRIN
     Indication: PRODUCT USED FOR UNKNOWN INDICATION
     Route: 065
  47. RANITIDINE. [Concomitant]
     Active Substance: RANITIDINE
  48. OXYGEN. [Concomitant]
     Active Substance: OXYGEN
  49. INVANZ [Concomitant]
     Active Substance: ERTAPENEM SODIUM
  50. ZOCOR [Concomitant]
     Active Substance: SIMVASTATIN
  51. AMBRISENTAN [Suspect]
     Active Substance: AMBRISENTAN
     Indication: PULMONARY ARTERIAL HYPERTENSION
     Dosage: 10 MG, QD
     Route: 048
     Dates: start: 20110208
  52. TREPROSTINIL DIOLAMIN [Suspect]
     Active Substance: TREPROSTINIL DIOLAMINE
     Dosage: 2.5 UNK, UNK
     Route: 048
  53. ALDACTONE [Concomitant]
     Active Substance: SPIRONOLACTONE
  54. FERGON [Concomitant]
     Active Substance: FERROUS GLUCONATE
  55. CYANOCOBALAMIN. [Concomitant]
     Active Substance: CYANOCOBALAMIN
  56. XANAX [Concomitant]
     Active Substance: ALPRAZOLAM

REACTIONS (3)
  - Fluid overload [Unknown]
  - Acute respiratory failure [Unknown]
  - Cellulitis [Unknown]
